FAERS Safety Report 25636956 (Version 1)
Quarter: 2025Q3

REPORT INFORMATION
  Report Type: Spontaneous
  Country: US (occurrence: US)
  Receive Date: 20250804
  Receipt Date: 20250804
  Transmission Date: 20251020
  Serious: No
  Sender: ACCORD
  Company Number: US-Accord-469637

PATIENT
  Age: 55 Year
  Sex: Female

DRUGS (6)
  1. DOCETAXEL [Suspect]
     Active Substance: DOCETAXEL
     Indication: Breast cancer metastatic
     Dates: start: 20180612, end: 20180713
  2. HERCEPTIN [Suspect]
     Active Substance: TRASTUZUMAB
     Indication: Breast cancer metastatic
     Dates: start: 20180612, end: 20180713
  3. PERJETA [Suspect]
     Active Substance: PERTUZUMAB
     Indication: Breast cancer metastatic
     Dates: start: 20180612, end: 20180713
  4. ADO-TRASTUZUMAB EMTANSINE [Suspect]
     Active Substance: ADO-TRASTUZUMAB EMTANSINE
     Indication: Breast cancer metastatic
     Dates: start: 201806
  5. XELODA [Suspect]
     Active Substance: CAPECITABINE
     Indication: Breast cancer metastatic
     Dates: start: 202302, end: 202306
  6. TRASTUZUMAB DERUXTECAN [Suspect]
     Active Substance: TRASTUZUMAB DERUXTECAN
     Indication: Breast cancer metastatic
     Dates: start: 20230615

REACTIONS (9)
  - Lacrimation increased [Not Recovered/Not Resolved]
  - Mucosal inflammation [Unknown]
  - Rhinorrhoea [Unknown]
  - Hypophagia [Unknown]
  - Facial discomfort [Unknown]
  - Scleral disorder [Unknown]
  - Skin exfoliation [Unknown]
  - Erythema [Unknown]
  - Blister [Unknown]

NARRATIVE: CASE EVENT DATE: 20180601
